FAERS Safety Report 9801488 (Version 3)
Quarter: 2015Q3

REPORT INFORMATION
  Report Type: Spontaneous
  Country: US (occurrence: US)
  Receive Date: 20140107
  Receipt Date: 20150730
  Transmission Date: 20151125
  Serious: No
  Sender: FDA-Public Use
  Company Number: US-GILEAD-US-CVT-100420

PATIENT
  Age: 77 Year
  Sex: Male

DRUGS (7)
  1. RANEXA [Suspect]
     Active Substance: RANOLAZINE
     Indication: PRODUCT USED FOR UNKNOWN INDICATION
  2. ECOTRIN [Concomitant]
     Active Substance: ASPIRIN
  3. CENTRUM SILVER [Concomitant]
     Active Substance: VITAMINS
  4. TOPROL XL [Concomitant]
     Active Substance: METOPROLOL SUCCINATE
  5. NITROSTAT [Concomitant]
     Active Substance: NITROGLYCERIN
  6. CRESTOR [Concomitant]
     Active Substance: ROSUVASTATIN CALCIUM
  7. VITAMIN D [Concomitant]
     Active Substance: CHOLECALCIFEROL

REACTIONS (2)
  - Visual impairment [Unknown]
  - Corneal dystrophy [Unknown]
